FAERS Safety Report 25304731 (Version 1)
Quarter: 2025Q2

REPORT INFORMATION
  Report Type: Spontaneous
  Country: US (occurrence: None)
  Receive Date: 20250512
  Receipt Date: 20250512
  Transmission Date: 20250716
  Serious: Yes (Life-Threatening, Hospitalization, Disabling, Other)
  Sender: FDA-CTU
  Company Number: None

PATIENT
  Age: 40 Year
  Sex: Male
  Weight: 90 kg

DRUGS (1)
  1. TACROLIMUS [Suspect]
     Active Substance: TACROLIMUS

REACTIONS (9)
  - Blindness [None]
  - Retinal degeneration [None]
  - Autoimmune retinopathy [None]
  - Diabetes mellitus [None]
  - Adverse drug reaction [None]
  - Tremor [None]
  - Vomiting [None]
  - Central nervous system lesion [None]
  - Neurotoxicity [None]

NARRATIVE: CASE EVENT DATE: 20250415
